FAERS Safety Report 5199549-6 (Version None)
Quarter: 2006Q4

REPORT INFORMATION
  Report Type: 
  Country: None (occurrence: None)
  Receive Date: 20061229
  Receipt Date: 20061218
  Transmission Date: 20070319
  Serious: Yes (Life-Threatening, Other)
  Sender: FDA-Public Use
  Company Number: 2006RR-04982

PATIENT
  Age: 46 Year
  Sex: Female

DRUGS (18)
  1. DICLOFENAC SODIUM [Suspect]
     Dosage: 75 MG, UNK, INTRAVENOUS
     Route: 042
  2. AMOXICILLIN [Suspect]
     Dosage: 1 G,
  3. EPHEDRINE SUL CAP [Suspect]
     Indication: HYPOTENSION
     Dosage: 6 MG
  4. FENTANYL [Suspect]
  5. GLYCOPYRROLATE (GLYCOPYRROLATE) [Suspect]
  6. ISOFLURANE [Suspect]
  7. MORPHINE [Suspect]
  8. NEOSTIGMINE (NEOSTIGMINE) [Suspect]
  9. NITROUS OXIDE (NITROUS OXIDE) [Suspect]
  10. ONDANSETRON (ONDANSETRON) UNKNOWN [Suspect]
  11. OXYGEN (OXYGEN) [Suspect]
  12. PROPOFOL [Suspect]
  13. VECURONIUM BROMIDE (VERUCONIUM BROMIDE) [Suspect]
  14. CO-DYDRAMOL ORAL (PARACETAMOL, DIHYDROCODEINE) [Concomitant]
  15. DIAZEPAM [Concomitant]
  16. ESCITALOPRAM OXALATE [Concomitant]
  17. NORETHINDRONE ACETATE [Concomitant]
  18. ZOLPIDEM TARTRATE [Concomitant]

REACTIONS (11)
  - ABDOMINAL DISTENSION [None]
  - ACUTE HEPATIC FAILURE [None]
  - COAGULOPATHY [None]
  - HEPATOMEGALY [None]
  - HYPOTENSION [None]
  - OXYGEN SATURATION DECREASED [None]
  - POST PROCEDURAL COMPLICATION [None]
  - SOMNOLENCE [None]
  - STRIDOR [None]
  - TACHYCARDIA [None]
  - TACHYPNOEA [None]
